FAERS Safety Report 6461249-X (Version None)
Quarter: 2009Q4

REPORT INFORMATION
  Report Type: 
  Country: None (occurrence: None)
  Receive Date: 20091130
  Receipt Date: 20091120
  Transmission Date: 20100525
  Serious: Yes (Hospitalization)
  Sender: FDA-Public Use
  Company Number: JP-BRISTOL-MYERS SQUIBB COMPANY-14561690

PATIENT
  Age: 74 Year
  Sex: Female

DRUGS (4)
  1. AVAPRO [Suspect]
     Indication: HYPERTENSION
     Route: 048
     Dates: start: 20081111, end: 20090321
  2. TAMIFLU [Suspect]
     Indication: INFLUENZA
     Dates: start: 20090114
  3. URSO 250 [Concomitant]
     Indication: CHRONIC HEPATITIS
     Route: 048
     Dates: start: 20070623
  4. EVISTA [Concomitant]
     Indication: OSTEOPOROSIS
     Route: 048
     Dates: start: 20080723

REACTIONS (1)
  - AUTOIMMUNE HEPATITIS [None]
